FAERS Safety Report 21437879 (Version 1)
Quarter: 2022Q4

REPORT INFORMATION
  Report Type: Spontaneous
  Country: DE (occurrence: DE)
  Receive Date: 20221011
  Receipt Date: 20221011
  Transmission Date: 20230113
  Serious: Yes (Hospitalization)
  Sender: FDA-Public Use
  Company Number: DE-SAMSUNG BIOEPIS-SB-2022-22842

PATIENT
  Age: 67 Year
  Sex: Female
  Weight: 60 kg

DRUGS (5)
  1. DOCETAXEL [Suspect]
     Active Substance: DOCETAXEL
     Indication: Breast cancer
     Dosage: 123 MILLIGRAM 3 WEEK
     Route: 042
     Dates: start: 20220831, end: 20220904
  2. CARBOPLATIN [Suspect]
     Active Substance: CARBOPLATIN
     Indication: Breast cancer
     Dosage: 570 MILLIGRAM 3 WEEK
     Route: 042
     Dates: start: 20220831, end: 20220904
  3. TAXOTERE [Suspect]
     Active Substance: DOCETAXEL
     Indication: Breast cancer
     Dosage: 123 MILLIGRAM 3 WEEK
     Route: 042
     Dates: start: 20220831, end: 20220904
  4. ONTRUZANT [Suspect]
     Active Substance: TRASTUZUMAB-DTTB
     Indication: Breast cancer
     Dosage: 480 MILLIGRAM 3 WEEK
     Route: 042
     Dates: start: 20220831, end: 20220904
  5. PERTUZUMAB [Suspect]
     Active Substance: PERTUZUMAB
     Indication: Breast cancer
     Dosage: 840 MILLIGRAM 3 WEEK
     Route: 042
     Dates: start: 20220831, end: 20220904

REACTIONS (6)
  - Headache [Recovered/Resolved]
  - Skin laceration [Recovered/Resolved]
  - Concussion [Recovered/Resolved]
  - Fall [Recovered/Resolved]
  - Diverticulum [Unknown]
  - Muscular weakness [Unknown]

NARRATIVE: CASE EVENT DATE: 20220904
